FAERS Safety Report 21842868 (Version 2)
Quarter: 2023Q1

REPORT INFORMATION
  Report Type: Spontaneous
  Country: DK (occurrence: DK)
  Receive Date: 20230110
  Receipt Date: 20230227
  Transmission Date: 20230418
  Serious: Yes (Death, Hospitalization, Other)
  Sender: FDA-Public Use
  Company Number: DK-PFIZER INC-PV202300001148

PATIENT
  Age: 62 Year
  Sex: Male

DRUGS (1)
  1. TOFACITINIB [Suspect]
     Active Substance: TOFACITINIB
     Dosage: 10 MG, 2X/DAY ((10 MG TWO TIMES PER DAY) PERORAL)
     Route: 048

REACTIONS (3)
  - Neoplasm progression [Fatal]
  - Pneumonia [Unknown]
  - Pulmonary embolism [Unknown]
